FAERS Safety Report 24230422 (Version 1)
Quarter: 2024Q3

REPORT INFORMATION
  Report Type: Spontaneous
  Country: US (occurrence: US)
  Receive Date: 20240821
  Receipt Date: 20240821
  Transmission Date: 20241016
  Serious: Yes (Hospitalization, Other)
  Sender: RANBAXY
  Company Number: US-SUN PHARMACEUTICAL INDUSTRIES LTD-2024R1-463297

PATIENT
  Age: 56 Year
  Sex: Female

DRUGS (1)
  1. ACETAMINOPHEN [Suspect]
     Active Substance: ACETAMINOPHEN
     Indication: Abdominal abscess
     Dosage: 500-650
     Route: 065

REACTIONS (4)
  - Haemorrhage intracranial [Unknown]
  - Encephalopathy [Unknown]
  - Acute kidney injury [Unknown]
  - Metabolic acidosis [Unknown]
